FAERS Safety Report 4656159-4 (Version None)
Quarter: 2005Q2

REPORT INFORMATION
  Report Type: 
  Country: None (occurrence: None)
  Receive Date: 20050509
  Receipt Date: 20050428
  Transmission Date: 20051028
  Serious: Yes (Death)
  Sender: FDA-Public Use
  Company Number: FR-ROCHE-403313

PATIENT
  Sex: Male
  Weight: 3.3 kg

DRUGS (3)
  1. RIVOTRIL [Suspect]
     Indication: EPILEPSY
  2. DEPAKENE [Suspect]
     Indication: EPILEPSY
  3. SPECIAFOLDINE [Concomitant]

REACTIONS (14)
  - APGAR SCORE LOW [None]
  - CARDIAC ARREST [None]
  - CARDIAC ARREST NEONATAL [None]
  - DRUG EXPOSURE DURING PREGNANCY [None]
  - FOETAL ARRHYTHMIA [None]
  - INVESTIGATION ABNORMAL [None]
  - NEONATAL RESPIRATORY DISTRESS SYNDROME [None]
  - PALLOR [None]
  - PNEUMOTHORAX [None]
  - PULMONARY HYPOPLASIA [None]
  - RESPIRATORY DISORDER [None]
  - RESPIRATORY DISORDER NEONATAL [None]
  - RESPIRATORY DISTRESS [None]
  - TOE DEFORMITY [None]
